FAERS Safety Report 4303622-1 (Version None)
Quarter: 2004Q1

REPORT INFORMATION
  Report Type: 
  Country: None (occurrence: None)
  Receive Date: 20040225
  Receipt Date: 20040212
  Transmission Date: 20041129
  Serious: Yes (Other)
  Sender: FDA-Public Use
  Company Number: PHBS2004ES02202

PATIENT
  Age: 54 Year
  Sex: Female

DRUGS (4)
  1. ZOMETA [Suspect]
     Indication: MULTIPLE MYELOMA
     Dosage: 4 MG, QMO
     Dates: start: 20030101, end: 20040101
  2. PREDNISONE [Concomitant]
     Dosage: 25 MG/48 H
     Route: 065
     Dates: start: 20000201, end: 20040201
  3. RADIOTHERAPY [Concomitant]
     Dosage: 40 GY
     Route: 065
     Dates: start: 19991201, end: 19991230
  4. INTERFERON ALFA-2B [Concomitant]
     Dosage: 3 MIU, QW3
     Route: 058
     Dates: start: 20000201, end: 20030501

REACTIONS (4)
  - NECROSIS [None]
  - OSTEOMYELITIS [None]
  - SERRATIA INFECTION [None]
  - SINUSITIS [None]
